FAERS Safety Report 5141459-4 (Version None)
Quarter: 2006Q4

REPORT INFORMATION
  Report Type: 
  Country: None (occurrence: None)
  Receive Date: 20061101
  Receipt Date: 20061027
  Transmission Date: 20070319
  Serious: Yes (Death, Hospitalization, Other)
  Sender: FDA-Public Use
  Company Number: US-BRISTOL-MYERS SQUIBB COMPANY-13557863

PATIENT
  Age: 32 Year
  Sex: Female

DRUGS (4)
  1. CARBOPLATIN [Suspect]
     Indication: THYMOMA MALIGNANT RECURRENT
  2. PACLITAXEL [Suspect]
     Indication: THYMOMA MALIGNANT RECURRENT
  3. PREDNISONE TAB [Concomitant]
  4. WARFARIN SODIUM [Concomitant]

REACTIONS (13)
  - ALANINE AMINOTRANSFERASE INCREASED [None]
  - ASPARTATE AMINOTRANSFERASE INCREASED [None]
  - BLOOD CREATINE PHOSPHOKINASE INCREASED [None]
  - ELECTROCARDIOGRAM ST SEGMENT ELEVATION [None]
  - HEPATIC NECROSIS [None]
  - MULTI-ORGAN FAILURE [None]
  - MUSCULAR WEAKNESS [None]
  - MYALGIA [None]
  - MYOCARDITIS [None]
  - PAPILLARY THYROID CANCER [None]
  - POLYMYOSITIS [None]
  - PYREXIA [None]
  - RESPIRATORY DISTRESS [None]
